FAERS Safety Report 7794826-4 (Version None)
Quarter: 2011Q3

REPORT INFORMATION
  Report Type: 
  Country: None (occurrence: None)
  Receive Date: 20110930
  Receipt Date: 20110915
  Transmission Date: 20111222
  Serious: Yes (Other)
  Sender: FDA-Public Use
  Company Number: GB-DEXPHARM-201114 03

PATIENT
  Age: 52 Year
  Sex: Male

DRUGS (10)
  1. OMEPRAZOLE [Suspect]
     Dosage: 40 MG MILLGRAM(S)   1 IN 1 DAY
  2. FERROUS SULFATE TAB [Concomitant]
  3. NARATRIPTAN [Concomitant]
  4. PHENYTOIN [Concomitant]
  5. VITAMIN B COMPLEX CAP [Concomitant]
  6. VALPROIC ACID [Concomitant]
  7. PYRIDOXINE HCL [Concomitant]
  8. LEVETIRACETAM [Concomitant]
  9. FOLIC ACID [Concomitant]
  10. GAVISCON [Concomitant]

REACTIONS (2)
  - EPILEPSY [None]
  - INSOMNIA [None]
